FAERS Safety Report 11969223 (Version 1)
Quarter: 2016Q1

REPORT INFORMATION
  Report Type: Spontaneous
  Country: US (occurrence: US)
  Receive Date: 20160128
  Receipt Date: 20160128
  Transmission Date: 20160526
  Serious: No
  Sender: FDA-Public Use
  Company Number: PHEH2015US007097

PATIENT
  Age: 49 Year
  Sex: Female
  Weight: 65.77 kg

DRUGS (1)
  1. TASIGNA [Suspect]
     Active Substance: NILOTINIB
     Indication: CHRONIC MYELOID LEUKAEMIA
     Dosage: 300 MG, BID
     Route: 048
     Dates: start: 20150310, end: 20150410

REACTIONS (1)
  - Oedema genital [Recovered/Resolved]

NARRATIVE: CASE EVENT DATE: 20150310
